FAERS Safety Report 15839418 (Version 1)
Quarter: 2019Q1

REPORT INFORMATION
  Report Type: Spontaneous
  Country: US (occurrence: US)
  Receive Date: 20190117
  Receipt Date: 20190117
  Transmission Date: 20190417
  Serious: No
  Sender: FDA-Public Use
  Company Number: US-TEVA-2018-US-991209

PATIENT
  Age: 3 Year
  Sex: Female

DRUGS (1)
  1. ALBUTEROL SULFATE SYRUP [Suspect]
     Active Substance: ALBUTEROL SULFATE
     Dosage: FORM STRENGTH: 2 MG/5 ML
     Route: 065
     Dates: start: 20181211

REACTIONS (1)
  - Blood glucose increased [Not Recovered/Not Resolved]

NARRATIVE: CASE EVENT DATE: 20181211
